FAERS Safety Report 15746518 (Version 9)
Quarter: 2019Q4

REPORT INFORMATION
  Report Type: Report from Study
  Country: US (occurrence: US)
  Receive Date: 20181220
  Receipt Date: 20191107
  Transmission Date: 20200122
  Serious: Yes (Other)
  Sender: FDA-Public Use
  Company Number: US-SA-2018SA343511

PATIENT
  Age: 60 Year
  Sex: Female

DRUGS (8)
  1. OXYBUTYNIN. [Concomitant]
     Active Substance: OXYBUTYNIN CHLORIDE
     Dosage: 5 MG, BID
     Route: 048
     Dates: start: 20181024
  2. BACTRIM [Concomitant]
     Active Substance: SULFAMETHOXAZOLE\TRIMETHOPRIM
     Dosage: UNK UNK, UNK
     Route: 065
  3. MELATONIN [Concomitant]
     Active Substance: MELATONIN
     Dosage: UNK, QD
     Route: 048
  4. ALEMTUZUMAB [Suspect]
     Active Substance: ALEMTUZUMAB
     Indication: RELAPSING-REMITTING MULTIPLE SCLEROSIS
     Dosage: 12 MG, QD
     Route: 041
     Dates: start: 20180115, end: 20180119
  5. DIPHENHYDRAMINE. [Concomitant]
     Active Substance: DIPHENHYDRAMINE
     Indication: HYPERSENSITIVITY
     Dosage: 50 MG, Q4H PRN
     Route: 048
  6. CARISOPRODOL. [Concomitant]
     Active Substance: CARISOPRODOL
     Indication: MULTIPLE SCLEROSIS
     Dosage: 350 MG, TID 1 TAB
     Route: 048
     Dates: start: 20190603
  7. CARVEDILOL. [Concomitant]
     Active Substance: CARVEDILOL
     Dosage: 12.5 MG, QD
     Route: 065
     Dates: start: 20161229
  8. NITROGLYCERIN. [Concomitant]
     Active Substance: NITROGLYCERIN
     Indication: CARDIAC DISCOMFORT
     Dosage: 0.4 MG, PRN
     Route: 065

REACTIONS (10)
  - Productive cough [Not Recovered/Not Resolved]
  - Bronchiolitis [Unknown]
  - CD4 lymphocytes decreased [Unknown]
  - Blood thyroid stimulating hormone increased [Unknown]
  - Urine leukocyte esterase positive [Unknown]
  - Pneumonia [Unknown]
  - Stenotrophomonas test positive [Unknown]
  - Dyspnoea exertional [Not Recovered/Not Resolved]
  - Staphylococcus test positive [Unknown]
  - Mycobacterium avium complex infection [Unknown]

NARRATIVE: CASE EVENT DATE: 20181212
